FAERS Safety Report 24214256 (Version 1)
Quarter: 2024Q3

REPORT INFORMATION
  Report Type: Spontaneous
  Country: US (occurrence: None)
  Receive Date: 20240814
  Receipt Date: 20240814
  Transmission Date: 20241017
  Serious: No
  Sender: Public
  Company Number: None

PATIENT
  Age: 33 Year
  Sex: Male
  Weight: 89.1 kg

DRUGS (2)
  1. CEFTRIAXONE SODIUM [Suspect]
     Active Substance: CEFTRIAXONE SODIUM
     Indication: Lower respiratory tract infection
     Dosage: OTHER FREQUENCY : ONCE;?
     Route: 030
  2. Depo-Medrol 60mg IM [Concomitant]
     Dates: start: 20240811, end: 20240811

REACTIONS (1)
  - Syncope [None]

NARRATIVE: CASE EVENT DATE: 20240811
